FAERS Safety Report 4692743-X (Version None)
Quarter: 2005Q2

REPORT INFORMATION
  Report Type: 
  Country: None (occurrence: None)
  Receive Date: 20050617
  Receipt Date: 20050531
  Transmission Date: 20051028
  Serious: Yes (Hospitalization)
  Sender: FDA-Public Use
  Company Number: 2005JP001084

PATIENT
  Age: 20 Year
  Sex: Male
  Weight: 69 kg

DRUGS (6)
  1. CEFAZOLIN [Suspect]
     Indication: MYOCARDITIS
     Dosage: 1G FOUR TIMES PER DAY
     Route: 042
     Dates: start: 20050506
  2. GASTER [Suspect]
     Indication: MYOCARDITIS
     Dosage: 20MG TWICE PER DAY
     Route: 042
     Dates: start: 20050502, end: 20050506
  3. METILON [Suspect]
     Indication: MYOCARDITIS
     Dosage: .5G TWICE PER DAY
     Route: 042
     Dates: start: 20050502, end: 20050502
  4. PIPERACILLIN [Suspect]
     Indication: MYOCARDITIS
     Dosage: 1G TWICE PER DAY
     Route: 042
     Dates: start: 20050504, end: 20050506
  5. BUSCOPAN [Suspect]
     Indication: MYOCARDITIS
     Dosage: 20MG PER DAY
     Route: 042
     Dates: start: 20050502, end: 20050502
  6. CEFMETAZON [Suspect]
     Indication: MYOCARDITIS
     Dosage: 2G TWICE PER DAY
     Route: 042
     Dates: start: 20050502, end: 20050503

REACTIONS (1)
  - EOSINOPHILIC MYOCARDITIS [None]
